FAERS Safety Report 7630857-2 (Version None)
Quarter: 2011Q3

REPORT INFORMATION
  Report Type: 
  Country: None (occurrence: None)
  Receive Date: 20110723
  Receipt Date: 20110719
  Transmission Date: 20111222
  Serious: Yes (Other)
  Sender: FDA-Public Use
  Company Number: ES-ABBOTT-08P-144-0486427-00

PATIENT
  Age: 40 Year
  Sex: Male

DRUGS (1)
  1. ADALIMUMAB [Suspect]
     Indication: CROHN'S DISEASE
     Route: 058

REACTIONS (1)
  - ACNE CYSTIC [None]
